FAERS Safety Report 7672285-X (Version None)
Quarter: 2011Q3

REPORT INFORMATION
  Report Type: 
  Country: None (occurrence: None)
  Receive Date: 20110804
  Receipt Date: 20110721
  Transmission Date: 20111222
  Serious: Yes (Hospitalization)
  Sender: FDA-Public Use
  Company Number: D1103258

PATIENT
  Age: 83 Year
  Sex: Male

DRUGS (7)
  1. AMIODARONE 200 MG (AMIODARONE) [Concomitant]
  2. JANTOVAN TABLETS 2 MG (WARFARIN SODIUM) [Suspect]
     Indication: PRODUCT USED FOR UNKNOWN INDICATION
     Dosage: DIRECTED, ORAL
     Route: 048
     Dates: start: 20100101, end: 20110701
  3. MELATONIN (MANUFACTURER UNKNOWN)(MELATONIN) [Suspect]
     Indication: PRODUCT USED FOR UNKNOWN INDICATION
     Dosage: ORAL
     Route: 048
     Dates: start: 20110701
  4. PANTOPRAZOLE [Concomitant]
  5. FENOFIBRATE [Concomitant]
  6. SYNTHROID [Concomitant]
  7. FUROSEMIDE [Concomitant]

REACTIONS (1)
  - INTERNATIONAL NORMALISED RATIO INCREASED [None]
